FAERS Safety Report 21094628 (Version 2)
Quarter: 2022Q3

REPORT INFORMATION
  Report Type: Spontaneous
  Country: DE (occurrence: DE)
  Receive Date: 20220718
  Receipt Date: 20220804
  Transmission Date: 20221026
  Serious: Yes (Other)
  Sender: FDA-Public Use
  Company Number: DE-TEVA-2022-DE-2053871

PATIENT
  Age: 55 Year
  Sex: Female

DRUGS (2)
  1. DEFERASIROX [Suspect]
     Active Substance: DEFERASIROX
     Indication: Anaemia macrocytic
     Dosage: 12 MG/KG DAILY;
     Route: 065
  2. DEFERASIROX [Suspect]
     Active Substance: DEFERASIROX
     Dosage: 17 MG/KG DAILY;
     Route: 065

REACTIONS (2)
  - Cholestasis [Recovered/Resolved]
  - Haemolysis [Recovered/Resolved]
